FAERS Safety Report 8784859 (Version 1)
Quarter: 2012Q4

REPORT INFORMATION
  Report Type: 
  Country: US (occurrence: US)
  Receive Date: 20120914
  Receipt Date: 20120914
  Transmission Date: 20130627
  Serious: No
  Sender: FDA-Public Use
  Company Number: US-ASTRAZENECA-2012SE61214

PATIENT
  Age: 40 Year
  Sex: Male

DRUGS (4)
  1. BRILINTA [Suspect]
     Route: 048
  2. LIPITOR [Concomitant]
  3. LIPOTIROSENE [Concomitant]
  4. SERMOTIDENE [Concomitant]

REACTIONS (2)
  - Dyspepsia [Unknown]
  - Drug dose omission [Unknown]
